FAERS Safety Report 9113508 (Version 2)
Quarter: 2013Q1

REPORT INFORMATION
  Report Type: Spontaneous
  Country: US (occurrence: US)
  Receive Date: 20130129
  Receipt Date: 20130313
  Transmission Date: 20140127
  Serious: No
  Sender: FDA-Public Use
  Company Number: US-009507513-1301USA013350

PATIENT
  Age: 42 Year
  Sex: Female
  Weight: 48.53 kg

DRUGS (3)
  1. CLARITIN REDITABS 12HR [Suspect]
     Indication: HYPERSENSITIVITY
     Dosage: 5 MG, Q12H
     Route: 048
     Dates: start: 20130120
  2. CLARITIN REDITABS 12HR [Suspect]
     Indication: SNEEZING
  3. CLARITIN REDITABS 12HR [Suspect]
     Indication: RHINORRHOEA

REACTIONS (1)
  - Drug ineffective [Unknown]
